FAERS Safety Report 4566401-6 (Version None)
Quarter: 2005Q1

REPORT INFORMATION
  Report Type: 
  Country: None (occurrence: None)
  Receive Date: 20050201
  Receipt Date: 20050121
  Transmission Date: 20050727
  Serious: Yes (Hospitalization)
  Sender: FDA-Public Use
  Company Number: 200510674GDDC

PATIENT
  Age: 5 Year
  Sex: Female
  Weight: 27 kg

DRUGS (5)
  1. RIFAMPICIN [Suspect]
     Indication: TUBERCULOSIS
  2. ISONIAZID [Suspect]
     Indication: TUBERCULOSIS
  3. PYRAZINAMIDE [Suspect]
     Indication: TUBERCULOSIS
  4. ETHAMBUTOL HCL [Suspect]
     Indication: TUBERCULOSIS
  5. PREDNISOLONE [Concomitant]

REACTIONS (5)
  - FOCAL NODULAR HYPERPLASIA [None]
  - HEPATIC ARTERY THROMBOSIS [None]
  - HEPATIC NECROSIS [None]
  - HEPATOCELLULAR DAMAGE [None]
  - VASCULITIS [None]
